FAERS Safety Report 7080460-0 (Version None)
Quarter: 2010Q4

REPORT INFORMATION
  Report Type: 
  Country: None (occurrence: None)
  Receive Date: 20101103
  Receipt Date: 20101022
  Transmission Date: 20110411
  Serious: Yes (Disabling)
  Sender: FDA-Public Use
  Company Number: BR-BAYER-201020292LA

PATIENT
  Age: 68 Year
  Sex: Male

DRUGS (2)
  1. BETAFERON [Suspect]
     Route: 065
     Dates: start: 20101022
  2. DIOVAN [Concomitant]
     Indication: HYPERTENSION
     Dosage: AS USED: 1/2 DF
     Route: 048
     Dates: start: 20090101

REACTIONS (4)
  - ABASIA [None]
  - FEELING HOT [None]
  - HEADACHE [None]
  - MUSCULAR WEAKNESS [None]
